FAERS Safety Report 6841343-1 (Version None)
Quarter: 2010Q3

REPORT INFORMATION
  Report Type: 
  Country: None (occurrence: None)
  Receive Date: 20100714
  Receipt Date: 20070905
  Transmission Date: 20110219
  Serious: No
  Sender: FDA-Public Use
  Company Number: US-PFIZER INC-2007055070

PATIENT
  Sex: Female
  Weight: 38.6 kg

DRUGS (11)
  1. CHANTIX [Suspect]
     Indication: SMOKING CESSATION THERAPY
     Dosage: EVERY DAY
     Route: 048
     Dates: start: 20070601
  2. NEXIUM [Concomitant]
  3. NIFEDIPINE [Concomitant]
  4. LOVASTATIN [Concomitant]
  5. METOCLOPRAMIDE [Concomitant]
  6. BENICAR [Concomitant]
  7. LEVOTHYROXINE SODIUM [Concomitant]
  8. BENZONATATE [Concomitant]
  9. FAMOTIDINE [Concomitant]
  10. OXYBUTYNIN CHLORIDE [Concomitant]
  11. ADVAIR DISKUS 100/50 [Concomitant]

REACTIONS (1)
  - TOBACCO USER [None]
